FAERS Safety Report 8154605-5 (Version None)
Quarter: 2012Q1

REPORT INFORMATION
  Report Type: 
  Country: None (occurrence: None)
  Receive Date: 20120221
  Receipt Date: 20120215
  Transmission Date: 20120608
  Serious: Yes (Other)
  Sender: FDA-Public Use
  Company Number: FR-ROCHE-1040627

PATIENT
  Sex: Male

DRUGS (5)
  1. TRUVADA [Concomitant]
  2. PEGASYS [Suspect]
     Indication: HEPATITIS C
     Route: 058
     Dates: start: 20111028
  3. COPEGUS [Suspect]
     Indication: HEPATITIS C
     Route: 048
     Dates: start: 20111028
  4. REYATAZ [Concomitant]
  5. INCIVO [Suspect]
     Indication: HEPATITIS C
     Route: 048
     Dates: start: 20111028, end: 20120120

REACTIONS (2)
  - ASTHENIA [None]
  - POLLAKIURIA [None]
